FAERS Safety Report 22527922 (Version 2)
Quarter: 2023Q2

REPORT INFORMATION
  Report Type: Report from Study
  Country: CA (occurrence: CA)
  Receive Date: 20230606
  Receipt Date: 20230619
  Transmission Date: 20230722
  Serious: Yes (Other)
  Sender: FDA-Public Use
  Company Number: CA-HLS-202301396

PATIENT
  Age: 26 Year
  Sex: Male

DRUGS (5)
  1. CLOZARIL [Suspect]
     Active Substance: CLOZAPINE
     Indication: Product used for unknown indication
     Dosage: CLOZAPINE TITRATION SCHEDULE: ?MAY 17: 25MG HS, ?MAY 18: 50MG HS, ?MAY 20: 75MG HS, ?MAY 22: 100MG H
     Route: 048
     Dates: start: 20230517, end: 20230531
  2. ATENOLOL [Concomitant]
     Active Substance: ATENOLOL
     Indication: Product used for unknown indication
     Dosage: 50MG
     Route: 065
     Dates: start: 20230505
  3. TRAZODONE [Concomitant]
     Active Substance: TRAZODONE HYDROCHLORIDE
     Indication: Product used for unknown indication
     Dosage: 100MG
     Route: 065
     Dates: start: 20230505
  4. ROSUVASTATIN [Concomitant]
     Active Substance: ROSUVASTATIN
     Indication: Product used for unknown indication
     Dosage: 10MG
     Route: 065
     Dates: start: 20230505
  5. PERINDOPRIL [Concomitant]
     Active Substance: PERINDOPRIL
     Indication: Product used for unknown indication
     Dosage: 2MG
     Route: 065
     Dates: start: 20230505

REACTIONS (6)
  - C-reactive protein increased [Unknown]
  - Lethargy [Unknown]
  - Nausea [Unknown]
  - Myopericarditis [Unknown]
  - Tachycardia [Unknown]
  - Vomiting [Unknown]

NARRATIVE: CASE EVENT DATE: 20230530
